FAERS Safety Report 6588160-8 (Version None)
Quarter: 2010Q1

REPORT INFORMATION
  Report Type: 
  Country: None (occurrence: None)
  Receive Date: 20100218
  Receipt Date: 20090416
  Transmission Date: 20100710
  Serious: No
  Sender: FDA-Public Use
  Company Number: US-ASTRAZENECA-2009UW09510

PATIENT
  Sex: Male

DRUGS (2)
  1. PLENDIL [Suspect]
     Route: 048
  2. CAPATAN [Concomitant]

REACTIONS (1)
  - BLOOD PRESSURE INCREASED [None]
